FAERS Safety Report 9363900 (Version 1)
Quarter: 2013Q2

REPORT INFORMATION
  Report Type: Spontaneous
  Country: AR (occurrence: None)
  Receive Date: 20130618
  Receipt Date: 20130618
  Transmission Date: 20140414
  Serious: Yes (Other)
  Sender: FDA-Public Use
  Company Number: SYM-2013-04679

PATIENT
  Age: 60 Year
  Sex: Female

DRUGS (5)
  1. FLAGYL [Suspect]
     Indication: IRRITABLE BOWEL SYNDROME
     Dosage: , 2 IN 1 D
     Route: 048
     Dates: start: 20130513
  2. FLAGYL [Suspect]
     Indication: DIVERTICULUM
     Dosage: , 2 IN 1 D
     Route: 048
     Dates: start: 20130513
  3. OTILONIUM BROMIDE(OTILONIUM BROMIDE)(40 MILLIGRAM)(OTILONIUM BROMIDE) [Concomitant]
  4. PAXON(LOSARTAN POTASSIUM) (LOSARTAN POTASSIUM) [Concomitant]
  5. CLONAZEPAM(CLONAZEPAM)(1 MILLIGRAM)(CLONAZEPAM) [Concomitant]

REACTIONS (2)
  - Hypertension [None]
  - Vision blurred [None]
